FAERS Safety Report 8417863-5 (Version None)
Quarter: 2012Q2

REPORT INFORMATION
  Report Type: 
  Country: None (occurrence: None)
  Receive Date: 20120607
  Receipt Date: 20120604
  Transmission Date: 20120825
  Serious: No
  Sender: FDA-Public Use
  Company Number: US-PFIZER INC-2012134425

PATIENT
  Sex: Female
  Weight: 132.88 kg

DRUGS (7)
  1. DIGOXIN [Concomitant]
     Dosage: UNK
  2. LYRICA [Suspect]
     Indication: DIABETIC NEUROPATHY
  3. COUMADIN [Concomitant]
     Dosage: UNK
  4. LYRICA [Suspect]
     Indication: PAIN IN EXTREMITY
     Dosage: 100 MG, 2X/DAY
     Route: 048
     Dates: start: 20050101
  5. METFORMIN [Concomitant]
     Dosage: UNK
  6. WARFARIN [Concomitant]
     Dosage: UNK
  7. GLIPIZIDE [Concomitant]
     Dosage: UNK

REACTIONS (2)
  - CHROMATURIA [None]
  - URINE ANALYSIS ABNORMAL [None]
